FAERS Safety Report 20939871 (Version 2)
Quarter: 2022Q3

REPORT INFORMATION
  Report Type: Spontaneous
  Country: US (occurrence: US)
  Receive Date: 20220609
  Receipt Date: 20220811
  Transmission Date: 20221026
  Serious: No
  Sender: FDA-Public Use
  Company Number: US-BRISTOL-MYERS SQUIBB COMPANY-2022-041465

PATIENT
  Age: 11 Year
  Sex: Male

DRUGS (1)
  1. THALOMID [Suspect]
     Active Substance: THALIDOMIDE
     Indication: Thalassaemia beta
     Route: 048
     Dates: start: 20200812

REACTIONS (4)
  - Blood cholesterol increased [Unknown]
  - Gait disturbance [Unknown]
  - Blood triglycerides increased [Unknown]
  - Intentional product use issue [Unknown]
